FAERS Safety Report 8058163-5 (Version None)
Quarter: 2012Q1

REPORT INFORMATION
  Report Type: 
  Country: None (occurrence: None)
  Receive Date: 20120120
  Receipt Date: 20111011
  Transmission Date: 20120608
  Serious: No
  Sender: FDA-Public Use
  Company Number: CA-JNJFOC-20120106747

PATIENT
  Sex: Male
  Weight: 102.5 kg

DRUGS (13)
  1. CITALOPRAM [Concomitant]
     Route: 065
  2. REMICADE [Suspect]
     Dosage: INDUCTION DOSE
     Route: 042
     Dates: start: 20111011
  3. TAMSULOSIN HCL [Concomitant]
     Route: 065
  4. PANTOPRAZOLE SODIUM [Concomitant]
     Route: 065
  5. POTASSIUM CHLORIDE [Concomitant]
     Route: 065
  6. VITAMIN D [Concomitant]
     Route: 065
  7. VITAMIN B-12 [Concomitant]
     Route: 065
  8. REMICADE [Suspect]
     Indication: CROHN'S DISEASE
     Dosage: INDUCTION DOSE
     Route: 042
     Dates: start: 20110824
  9. PREDNISONE TAB [Concomitant]
     Route: 065
  10. CALCIUM [Concomitant]
     Route: 065
  11. REMICADE [Suspect]
     Dosage: INDUCTION DOSE
     Route: 042
     Dates: start: 20110912
  12. METHOTREXATE [Concomitant]
     Route: 065
  13. ALL OTHER THERAPEUTICS [Concomitant]
     Route: 065

REACTIONS (2)
  - HERPES ZOSTER [None]
  - RASH VESICULAR [None]
